FAERS Safety Report 6161602-8 (Version None)
Quarter: 2009Q2

REPORT INFORMATION
  Report Type: 
  Country: None (occurrence: None)
  Receive Date: 20090421
  Receipt Date: 20090417
  Transmission Date: 20091009
  Serious: Yes (Death, Hospitalization)
  Sender: FDA-Public Use
  Company Number: CA-BRISTOL-MYERS SQUIBB COMPANY-14591820

PATIENT
  Age: 53 Year
  Sex: Male

DRUGS (6)
  1. REYATAZ [Suspect]
  2. DIDANOSINE [Suspect]
  3. ASPIRIN [Suspect]
  4. INDOMETHACIN [Suspect]
  5. RITONAVIR [Suspect]
  6. TENOFOVIR [Suspect]

REACTIONS (8)
  - BLOOD CREATININE INCREASED [None]
  - BLOOD PHOSPHORUS INCREASED [None]
  - BLOOD POTASSIUM INCREASED [None]
  - BLOOD UREA INCREASED [None]
  - GLUCOSE URINE PRESENT [None]
  - PROTEINURIA [None]
  - RENAL FAILURE [None]
  - RENAL TUBULAR NECROSIS [None]
